APPROVED DRUG PRODUCT: DEFERASIROX
Active Ingredient: DEFERASIROX
Strength: 360MG
Dosage Form/Route: TABLET;ORAL
Application: A210555 | Product #002 | TE Code: AB
Applicant: ALKEM LABORATORIES LTD
Approved: Mar 30, 2020 | RLD: No | RS: No | Type: RX